FAERS Safety Report 8173757-4 (Version None)
Quarter: 2012Q1

REPORT INFORMATION
  Report Type: 
  Country: None (occurrence: None)
  Receive Date: 20120224
  Receipt Date: 20120216
  Transmission Date: 20120608
  Serious: Yes (Hospitalization)
  Sender: FDA-Public Use
  Company Number: 2012HGS-003286

PATIENT
  Age: 41 Year
  Sex: Female
  Weight: 82.5547 kg

DRUGS (11)
  1. DILAUDID(HYDROMORPHONE HYDROCHLORIDE)(HYDROMORPHONE HYDROCHLORIDE) [Concomitant]
  2. TRAMADOL HCL [Concomitant]
  3. ATIVAN [Concomitant]
  4. HYDROCHLOROTHIAZIDE [Concomitant]
  5. PROTONIX (PANTOPRAZOLE SODIUM SESOUIHYDRATE)(PANTOPRAZOLE SODIUM SESQU [Concomitant]
  6. OMEGA-3(OMEGA-3 TRIGLYCERIDES)(OMEGA-3 TRIGLYCERIDES) [Concomitant]
  7. METHOTREXATE [Concomitant]
  8. MORPHINE [Concomitant]
  9. NORVASC [Concomitant]
  10. AMITRIPTYLINE (AMITRIPTYLINE)(AMITRIPTYLINE) [Concomitant]
  11. BENLYSTA [Suspect]
     Indication: SYSTEMIC LUPUS ERYTHEMATOSUS
     Dosage: 900 MG, 1 IN 28 D, INTRAVENOUS DRIP
     Route: 041
     Dates: start: 20111012

REACTIONS (7)
  - BACK PAIN [None]
  - CONDITION AGGRAVATED [None]
  - PAIN IN EXTREMITY [None]
  - HEPATITIS [None]
  - DIARRHOEA [None]
  - SYSTEMIC LUPUS ERYTHEMATOSUS [None]
  - DEHYDRATION [None]
